FAERS Safety Report 11358433 (Version 1)
Quarter: 2015Q3

REPORT INFORMATION
  Report Type: Spontaneous
  Country: US (occurrence: US)
  Receive Date: 20150803
  Receipt Date: 20150803
  Transmission Date: 20151125
  Serious: No
  Sender: FDA-Public Use
  Company Number: US-ELI_LILLY_AND_COMPANY-US200802000067

PATIENT
  Sex: Female
  Weight: 57.6 kg

DRUGS (3)
  1. PROZAC [Suspect]
     Active Substance: FLUOXETINE HYDROCHLORIDE
     Dosage: 40 MG, UNK
     Dates: start: 2005
  2. TOPAMAX [Concomitant]
     Active Substance: TOPIRAMATE
  3. STRATTERA [Suspect]
     Active Substance: ATOMOXETINE HYDROCHLORIDE
     Indication: ATTENTION DEFICIT/HYPERACTIVITY DISORDER
     Dosage: 80 MG, DAILY (1/D)
     Dates: start: 2005

REACTIONS (2)
  - Psychomotor hyperactivity [Recovered/Resolved]
  - Irritability [Recovered/Resolved]
